FAERS Safety Report 16030741 (Version 2)
Quarter: 2019Q2

REPORT INFORMATION
  Report Type: Spontaneous
  Country: US (occurrence: US)
  Receive Date: 20190304
  Receipt Date: 20190603
  Transmission Date: 20190711
  Serious: Yes (Hospitalization, Other)
  Sender: FDA-Public Use
  Company Number: US-PFIZER INC-2019084859

PATIENT
  Age: 53 Year
  Sex: Female
  Weight: 98.43 kg

DRUGS (10)
  1. CHANTIX [Suspect]
     Active Substance: VARENICLINE TARTRATE
     Dosage: UNK
     Dates: start: 2016, end: 2017
  2. AMITRIPTYLINE [Concomitant]
     Active Substance: AMITRIPTYLINE
     Indication: SLEEP DISORDER
     Dosage: 25 MG, DAILY (NIGHTLY)
     Dates: start: 2014
  3. OMEPRAZOLE SODIUM [Concomitant]
     Active Substance: OMEPRAZOLE SODIUM
     Indication: GASTROOESOPHAGEAL REFLUX DISEASE
     Dosage: 40 MG, DAILY
  4. LEVOTHYROXINE. [Concomitant]
     Active Substance: LEVOTHYROXINE
     Dosage: 125 MG, UNK
  5. FEXOFENADINE [Concomitant]
     Active Substance: FEXOFENADINE\FEXOFENADINE HYDROCHLORIDE
     Indication: DRUG HYPERSENSITIVITY
     Dosage: 180 MG, 1X/DAY
  6. CHANTIX [Suspect]
     Active Substance: VARENICLINE TARTRATE
     Indication: SMOKING CESSATION THERAPY
     Dosage: UNK
     Dates: start: 201507, end: 201601
  7. CHOLECALCIFEROL [Concomitant]
     Active Substance: CHOLECALCIFEROL
     Indication: LACTOSE INTOLERANCE
     Dosage: 2000 IU, 2X/DAY
     Dates: start: 2015
  8. EFFEXOR [Concomitant]
     Active Substance: VENLAFAXINE HYDROCHLORIDE
     Dosage: 37.5 MG, UNK
  9. CHANTIX [Suspect]
     Active Substance: VARENICLINE TARTRATE
     Dosage: UNK
     Dates: end: 201510
  10. SERTRALINE [Concomitant]
     Active Substance: SERTRALINE HYDROCHLORIDE
     Indication: MENOPAUSE
     Dosage: 100 MG, 1X/DAY
     Dates: start: 2016

REACTIONS (5)
  - Nightmare [Recovered/Resolved]
  - Somnambulism [Recovered/Resolved]
  - Abdominal distension [Not Recovered/Not Resolved]
  - Seizure [Not Recovered/Not Resolved]
  - Mastication disorder [Not Recovered/Not Resolved]

NARRATIVE: CASE EVENT DATE: 20150726
